FAERS Safety Report 7913754-4 (Version None)
Quarter: 2011Q4

REPORT INFORMATION
  Report Type: 
  Country: None (occurrence: None)
  Receive Date: 20111115
  Receipt Date: 20111108
  Transmission Date: 20120403
  Serious: Yes (Hospitalization)
  Sender: FDA-Public Use
  Company Number: DE-BRISTOL-MYERS SQUIBB COMPANY-16183386

PATIENT
  Sex: Male

DRUGS (2)
  1. REYATAZ [Suspect]
     Indication: HIV INFECTION
     Route: 065
  2. PANTOPRAZOLE [Concomitant]

REACTIONS (1)
  - LOWER LIMB FRACTURE [None]
